FAERS Safety Report 26114155 (Version 1)
Quarter: 2025Q4

REPORT INFORMATION
  Report Type: Spontaneous
  Country: US (occurrence: US)
  Receive Date: 20251202
  Receipt Date: 20251202
  Transmission Date: 20260118
  Serious: No
  Sender: PFIZER
  Company Number: US-PFIZER INC-202500233718

PATIENT
  Age: 45 Year
  Sex: Male
  Weight: 90.7 kg

DRUGS (1)
  1. NIFEDIPINE [Suspect]
     Active Substance: NIFEDIPINE
     Indication: Renal failure
     Dosage: 90 MG, 1X/DAY
     Route: 048
     Dates: start: 202508, end: 202511

REACTIONS (2)
  - Drug ineffective [Unknown]
  - Drug effect faster than expected [Unknown]
